FAERS Safety Report 5782236-0 (Version None)
Quarter: 2008Q2

REPORT INFORMATION
  Report Type: 
  Country: None (occurrence: None)
  Receive Date: 20080623
  Receipt Date: 20080611
  Transmission Date: 20081010
  Serious: Yes (Hospitalization)
  Sender: FDA-Public Use
  Company Number: US-JNJFOC-20080603218

PATIENT
  Sex: Male
  Weight: 79.38 kg

DRUGS (8)
  1. FENTANYL TRANSDERMAL SYSTEM [Suspect]
     Route: 062
  2. FENTANYL TRANSDERMAL SYSTEM [Suspect]
     Route: 062
  3. FENTANYL TRANSDERMAL SYSTEM [Suspect]
     Indication: NEURALGIA
     Route: 062
  4. LYRICA [Suspect]
     Indication: NEURALGIA
     Route: 048
  5. BENICAR [Concomitant]
     Indication: HYPERTENSION
     Route: 048
  6. SOMA [Concomitant]
     Indication: MUSCLE SPASMS
     Route: 048
  7. SIMVASTATIN [Concomitant]
     Indication: BLOOD CHOLESTEROL INCREASED
     Route: 048
  8. PRILOSEC [Concomitant]
     Indication: GASTROOESOPHAGEAL REFLUX DISEASE
     Route: 048

REACTIONS (3)
  - MALAISE [None]
  - RENAL FAILURE [None]
  - WRONG TECHNIQUE IN DRUG USAGE PROCESS [None]
